FAERS Safety Report 11330375 (Version 3)
Quarter: 2015Q3

REPORT INFORMATION
  Report Type: Report from Study
  Country: NL (occurrence: NL)
  Receive Date: 20150803
  Receipt Date: 20150916
  Transmission Date: 20151125
  Serious: Yes (Hospitalization)
  Sender: FDA-Public Use
  Company Number: NL-ROCHE-1611745

PATIENT
  Age: 63 Year
  Sex: Male
  Weight: 82 kg

DRUGS (11)
  1. CISPLATIN. [Suspect]
     Active Substance: CISPLATIN
     Indication: HER-2 POSITIVE GASTRIC CANCER
     Dosage: DATE OF MOST RECENT DOSE PRIOR TO SAE: 17/JUL/2015
     Route: 042
     Dates: start: 20150717
  2. ASCAL CARDIO [Concomitant]
     Active Substance: CARBASALATE
     Route: 065
  3. CAPECITABINE. [Suspect]
     Active Substance: CAPECITABINE
     Indication: HER-2 POSITIVE GASTRIC CANCER
     Dosage: RECEIVED MOST RECENT DOSE ON 17/JUL/2015
     Route: 048
     Dates: start: 20150717, end: 20150724
  4. ACETYLSALICYLIC ACID [Concomitant]
     Active Substance: ASPIRIN
     Indication: MYOCARDIAL INFARCTION
     Route: 048
     Dates: start: 20040601
  5. BLINDED PERTUZUMAB [Suspect]
     Active Substance: PERTUZUMAB
     Indication: HER-2 POSITIVE GASTRIC CANCER
     Dosage: DATE OF MOST RECENT DOSE PRIOR TO SAE: 17/JUL/2015
     Route: 042
     Dates: start: 20150717
  6. CISPLATIN. [Suspect]
     Active Substance: CISPLATIN
     Route: 042
     Dates: start: 20150807
  7. OMEPRAZOL [Concomitant]
     Active Substance: OMEPRAZOLE
     Dosage: INDICATION: STOMACH PROBLEMS DUE TO ESOPHAGUS CARCINOOM
     Route: 048
     Dates: start: 20150529
  8. NITRO SPRAY [Concomitant]
     Dosage: PRN
     Route: 065
  9. TRASTUZUMAB [Suspect]
     Active Substance: TRASTUZUMAB
     Indication: HER-2 POSITIVE GASTRIC CANCER
     Dosage: DATE OF MOST RECENT DOSE PRIOR TO SAE: 17/JUL/2015
     Route: 042
     Dates: start: 20150717
  10. CAPECITABINE. [Suspect]
     Active Substance: CAPECITABINE
     Route: 048
     Dates: start: 20150729
  11. SIMVASTATINE [Concomitant]
     Active Substance: SIMVASTATIN
     Indication: HYPERCHOLESTEROLAEMIA
     Route: 048
     Dates: start: 20110501

REACTIONS (1)
  - Acute kidney injury [Recovered/Resolved]

NARRATIVE: CASE EVENT DATE: 20150718
